FAERS Safety Report 6358654-9 (Version None)
Quarter: 2009Q3

REPORT INFORMATION
  Report Type: 
  Country: None (occurrence: None)
  Receive Date: 20090914
  Receipt Date: 20090903
  Transmission Date: 20100115
  Serious: Yes (Other)
  Sender: FDA-Public Use
  Company Number: 236555K09USA

PATIENT
  Age: 38 Year
  Sex: Female

DRUGS (6)
  1. REBIF [Suspect]
     Indication: MULTIPLE SCLEROSIS
     Dosage: 44 MCG, 3 IN 1 WEEKS, SUBCUTANEOUS
     Route: 058
     Dates: start: 20081119
  2. LEVOTHYROXINE SODIUM [Suspect]
     Indication: HYPOTHYROIDISM
     Dosage: NOT REPORTED
  3. CITALOPRAM HYDROBROMIDE [Suspect]
     Indication: DEPRESSION
     Dosage: NOT REPORTED
  4. AMANTADINE HCL [Suspect]
     Indication: FATIGUE
     Dosage: NOT REPORTED
  5. NAPROXEN [Suspect]
     Indication: MULTIPLE SCLEROSIS
     Dosage: NOT REPORTED
  6. NAPROXEN [Concomitant]

REACTIONS (3)
  - EYE HAEMORRHAGE [None]
  - RETINAL VEIN OCCLUSION [None]
  - VISUAL FIELD DEFECT [None]
